FAERS Safety Report 18468205 (Version 1)
Quarter: 2020Q4

REPORT INFORMATION
  Report Type: Spontaneous
  Country: JP (occurrence: JP)
  Receive Date: 20201105
  Receipt Date: 20201105
  Transmission Date: 20210114
  Serious: Yes (Other)
  Sender: FDA-Public Use
  Company Number: JP-GLAXOSMITHKLINE-JP2020203477

PATIENT
  Age: 6 Decade
  Sex: Male

DRUGS (1)
  1. LAMICTAL [Suspect]
     Active Substance: LAMOTRIGINE
     Indication: BIPOLAR DISORDER
     Dosage: 100 MG, 1D
     Route: 048

REACTIONS (7)
  - Seizure [Unknown]
  - Cerebral haemorrhage [Unknown]
  - Brain contusion [Unknown]
  - Pneumocephalus [Unknown]
  - Fall [Unknown]
  - Therapy cessation [Unknown]
  - Wound [Unknown]
